FAERS Safety Report 16400222 (Version 1)
Quarter: 2019Q2

REPORT INFORMATION
  Report Type: Spontaneous
  Country: US (occurrence: US)
  Receive Date: 20190606
  Receipt Date: 20190606
  Transmission Date: 20190711
  Serious: No
  Sender: FDA-Public Use
  Company Number: US-ALLERGAN-1832066US

PATIENT
  Age: 46 Year
  Sex: Female

DRUGS (1)
  1. KYBELLA [Suspect]
     Active Substance: DEOXYCHOLIC ACID
     Indication: SKIN WRINKLING
     Dosage: UNK UNK, SINGLE
     Route: 065
     Dates: start: 201711, end: 201711

REACTIONS (5)
  - Injection site inflammation [Not Recovered/Not Resolved]
  - Facial asymmetry [Not Recovered/Not Resolved]
  - Skin indentation [Not Recovered/Not Resolved]
  - Injection site atrophy [Unknown]
  - Off label use [Unknown]

NARRATIVE: CASE EVENT DATE: 201711
